FAERS Safety Report 23568545 (Version 2)
Quarter: 2024Q1

REPORT INFORMATION
  Report Type: Spontaneous
  Country: US (occurrence: US)
  Receive Date: 20240227
  Receipt Date: 20240228
  Transmission Date: 20240409
  Serious: Yes (Other)
  Sender: FDA-Public Use
  Company Number: US-BRISTOL-MYERS SQUIBB COMPANY-2024-029119

PATIENT
  Age: 67 Year
  Sex: Female

DRUGS (2)
  1. ELIQUIS [Suspect]
     Active Substance: APIXABAN
     Indication: Pulmonary embolism
     Route: 048
  2. ELIQUIS [Suspect]
     Active Substance: APIXABAN
     Indication: Deep vein thrombosis

REACTIONS (5)
  - Haemorrhage [Unknown]
  - Haematemesis [Unknown]
  - Gastrointestinal perforation [Unknown]
  - Diarrhoea haemorrhagic [Unknown]
  - Pharyngeal haemorrhage [Unknown]

NARRATIVE: CASE EVENT DATE: 20210811
